FAERS Safety Report 8343621-6 (Version None)
Quarter: 2012Q2

REPORT INFORMATION
  Report Type: 
  Country: None (occurrence: None)
  Receive Date: 20120508
  Receipt Date: 20100708
  Transmission Date: 20120825
  Serious: No
  Sender: FDA-Public Use
  Company Number: US-TEVA-2010003309

PATIENT
  Sex: Male
  Weight: 98.972 kg

DRUGS (2)
  1. RITUXAN [Concomitant]
     Dates: start: 20100409, end: 20100709
  2. TREANDA [Suspect]
     Route: 042
     Dates: start: 20100409, end: 20100709

REACTIONS (1)
  - INFUSION SITE INDURATION [None]
